FAERS Safety Report 26200924 (Version 1)
Quarter: 2025Q4

REPORT INFORMATION
  Report Type: Spontaneous
  Country: KZ (occurrence: KZ)
  Receive Date: 20251226
  Receipt Date: 20251226
  Transmission Date: 20260118
  Serious: Yes (Other)
  Sender: HETERO
  Company Number: KZ-HETERO-HET2025KZ08028

PATIENT
  Sex: Male

DRUGS (1)
  1. DOLUTEGRAVIR\LAMIVUDINE\TENOFOVIR DISOPROXIL FUMARATE [Suspect]
     Active Substance: DOLUTEGRAVIR\LAMIVUDINE\TENOFOVIR DISOPROXIL FUMARATE
     Indication: HIV infection WHO clinical stage II
     Dosage: UNK
     Route: 065

REACTIONS (2)
  - Cytopenia [Recovering/Resolving]
  - Renal injury [Recovering/Resolving]
